FAERS Safety Report 17128621 (Version 1)
Quarter: 2019Q4

REPORT INFORMATION
  Report Type: Spontaneous
  Country: US (occurrence: US)
  Receive Date: 20191206
  Receipt Date: 20191206
  Transmission Date: 20200122
  Serious: Yes (Life-Threatening, Disabling)
  Sender: FDA-Public Use
  Company Number: None

PATIENT
  Sex: Female
  Weight: 113.4 kg

DRUGS (12)
  1. COMPAZINE [Concomitant]
     Active Substance: PROCHLORPERAZINE MALEATE
  2. TAMOXIFEN [Concomitant]
     Active Substance: TAMOXIFEN
  3. OMEPRAZOLE. [Concomitant]
     Active Substance: OMEPRAZOLE
  4. BENDAMUSTINE [Concomitant]
     Active Substance: BENDAMUSTINE
  5. MELATONIN [Concomitant]
     Active Substance: MELATONIN
  6. ALLOPURINOL. [Concomitant]
     Active Substance: ALLOPURINOL
  7. VITAMIN B12 [Concomitant]
     Active Substance: CYANOCOBALAMIN
  8. RITUXIMAB. [Concomitant]
     Active Substance: RITUXIMAB
  9. ZOFRAN [Concomitant]
     Active Substance: ONDANSETRON HYDROCHLORIDE
  10. TYLENOL [Concomitant]
     Active Substance: ACETAMINOPHEN
  11. VITAMIN D3 [Concomitant]
     Active Substance: CHOLECALCIFEROL
  12. RANITIDINE. [Suspect]
     Active Substance: RANITIDINE
     Indication: GASTROOESOPHAGEAL REFLUX DISEASE
     Dosage: ?          QUANTITY:2 TABLET(S);OTHER FREQUENCY:NIGHTLY;?
     Route: 048
     Dates: start: 20160112, end: 20190919

REACTIONS (2)
  - Invasive breast carcinoma [None]
  - Non-Hodgkin^s lymphoma stage III [None]
